FAERS Safety Report 5221254-8 (Version None)
Quarter: 2007Q1

REPORT INFORMATION
  Report Type: 
  Country: None (occurrence: None)
  Receive Date: 20070126
  Receipt Date: 20070117
  Transmission Date: 20070707
  Serious: Yes (Death, Hospitalization)
  Sender: FDA-Public Use
  Company Number: US-AMGEN-US198251

PATIENT
  Sex: Male
  Weight: 108.5 kg

DRUGS (8)
  1. ENBREL [Suspect]
     Indication: RHEUMATOID ARTHRITIS
     Route: 065
     Dates: start: 20010701
  2. ASPIRIN [Concomitant]
     Route: 065
  3. PRILOSEC [Concomitant]
     Route: 065
  4. PRINIVIL [Concomitant]
     Route: 065
  5. DIGOXIN [Concomitant]
     Route: 065
  6. PREDNISONE [Concomitant]
     Route: 065
  7. NAPROSYN [Concomitant]
     Route: 065
  8. FLONASE [Concomitant]
     Route: 045

REACTIONS (9)
  - ANAEMIA [None]
  - ASTHENIA [None]
  - CARDIAC FAILURE CONGESTIVE [None]
  - DEATH [None]
  - DUODENAL ULCER [None]
  - GENERAL PHYSICAL HEALTH DETERIORATION [None]
  - KIDNEY INFECTION [None]
  - OEDEMA PERIPHERAL [None]
  - PROTEINURIA [None]
